FAERS Safety Report 6550458-7 (Version None)
Quarter: 2010Q1

REPORT INFORMATION
  Report Type: 
  Country: None (occurrence: None)
  Receive Date: 20100125
  Receipt Date: 20100121
  Transmission Date: 20100710
  Serious: Yes (Life-Threatening, Hospitalization, Congenital Anomaly, Other)
  Sender: FDA-Public Use
  Company Number: A0626587A

PATIENT
  Sex: Female
  Weight: 3.2 kg

DRUGS (7)
  1. PAXIL [Suspect]
     Indication: ANXIETY
     Dosage: 20MG PER DAY
     Dates: start: 20011129, end: 20030807
  2. TYLENOL [Concomitant]
  3. VITAMIN TAB [Concomitant]
  4. IRON [Concomitant]
  5. TAVIST-D [Concomitant]
  6. STEROID [Concomitant]
  7. MACROBID [Concomitant]

REACTIONS (15)
  - APNOEA [None]
  - ATRIAL SEPTAL DEFECT [None]
  - CARDIAC MURMUR [None]
  - CONGENITAL PULMONARY VALVE ATRESIA [None]
  - CONGENITAL TRICUSPID VALVE ATRESIA [None]
  - CONGENITAL TRICUSPID VALVE STENOSIS [None]
  - CYANOSIS [None]
  - DRUG EXPOSURE DURING PREGNANCY [None]
  - HEART DISEASE CONGENITAL [None]
  - PATENT DUCTUS ARTERIOSUS [None]
  - PULMONARY VALVE STENOSIS CONGENITAL [None]
  - TRACHEAL STENOSIS [None]
  - TRICUSPID VALVE INCOMPETENCE [None]
  - VENTRICULAR HYPERTROPHY [None]
  - VENTRICULAR HYPOPLASIA [None]
